FAERS Safety Report 8520103-X (Version None)
Quarter: 2012Q3

REPORT INFORMATION
  Report Type: 
  Country: None (occurrence: None)
  Receive Date: 20120719
  Receipt Date: 20120713
  Transmission Date: 20120928
  Serious: Yes (Other)
  Sender: FDA-Public Use
  Company Number: US-PFIZER INC-2012170466

PATIENT
  Sex: Female

DRUGS (1)
  1. TOVIAZ [Suspect]
     Indication: URINARY INCONTINENCE
     Dosage: 1/2 OF 4MG EVERY OTHER DAY

REACTIONS (4)
  - URINARY RETENTION [None]
  - DYSURIA [None]
  - URINE FLOW DECREASED [None]
  - LIP SWELLING [None]
